FAERS Safety Report 6886989 (Version 8)
Quarter: 2013Q1

REPORT INFORMATION
  Report Type: Spontaneous
  Country: US (occurrence: US)
  Receive Date: 20050426
  Receipt Date: 20130221
  Transmission Date: 20140127
  Serious: Yes (Hospitalization)
  Sender: FDA-Public Use
  Company Number: US-BIOGENIDEC-2005BI007482

PATIENT
  Age: 60 Year
  Sex: Female

DRUGS (2)
  1. AVONEX [Suspect]
     Indication: MULTIPLE SCLEROSIS
     Route: 030
     Dates: start: 20020621
  2. AVONEX [Suspect]
     Indication: MULTIPLE SCLEROSIS
     Route: 030

REACTIONS (10)
  - N-telopeptide urine increased [Unknown]
  - Breast cancer stage I [Recovered/Resolved]
  - Osteoarthritis [Not Recovered/Not Resolved]
  - Dysuria [Recovered/Resolved]
  - Ovarian cancer [Recovered/Resolved]
  - Post procedural haemorrhage [Recovered/Resolved]
  - Rib fracture [Unknown]
  - Fall [Recovered/Resolved]
  - Gastrooesophageal reflux disease [Unknown]
  - Migraine [Unknown]
